FAERS Safety Report 6776558-4 (Version None)
Quarter: 2010Q2

REPORT INFORMATION
  Report Type: 
  Country: None (occurrence: None)
  Receive Date: 20100615
  Receipt Date: 20100531
  Transmission Date: 20101027
  Serious: Yes (Disabling)
  Sender: FDA-Public Use
  Company Number: 2010AP001148

PATIENT
  Age: 29 Year
  Sex: Female

DRUGS (5)
  1. RISPERIDONE [Suspect]
     Indication: HALLUCINATIONS, MIXED
     Dosage: 2 MG;QD; PO
     Route: 048
     Dates: start: 20100205, end: 20100330
  2. CETIRIZINE HCL [Concomitant]
  3. CLONAZEPAM [Concomitant]
  4. CHLORPHENAMINE MALEATE (CHLQRPHENAMINE MALEATE) [Concomitant]
  5. QUETIAPINE [Concomitant]

REACTIONS (2)
  - LYMPHOEDEMA [None]
  - RASH [None]
